FAERS Safety Report 8481830-6 (Version None)
Quarter: 2012Q3

REPORT INFORMATION
  Report Type: 
  Country: None (occurrence: None)
  Receive Date: 20120702
  Receipt Date: 20120629
  Transmission Date: 20120928
  Serious: No
  Sender: FDA-Public Use
  Company Number: US-PFIZER INC-2012140555

PATIENT
  Sex: Male
  Weight: 63.492 kg

DRUGS (1)
  1. NEURONTIN [Suspect]
     Indication: DIABETIC NEUROPATHY
     Dosage: UNK, 2X/DAY
     Route: 048
     Dates: start: 20120501, end: 20120601

REACTIONS (2)
  - HYPERSENSITIVITY [None]
  - WEIGHT INCREASED [None]
